FAERS Safety Report 9286342 (Version 1)
Quarter: 2013Q2

REPORT INFORMATION
  Report Type: Spontaneous
  Country: FR (occurrence: FR)
  Receive Date: 20130513
  Receipt Date: 20130513
  Transmission Date: 20140414
  Serious: Yes (Hospitalization)
  Sender: FDA-Public Use
  Company Number: FR-PFIZER INC-HQ0866515MAY2001

PATIENT
  Age: 77 Year
  Sex: Female

DRUGS (1)
  1. EUPANTOL [Suspect]
     Indication: GASTROOESOPHAGEAL REFLUX DISEASE
     Dosage: 40 MG, 1X/DAY
     Route: 048
     Dates: start: 20001120, end: 20010328

REACTIONS (1)
  - Pancytopenia [Not Recovered/Not Resolved]
